FAERS Safety Report 25706616 (Version 3)
Quarter: 2025Q4

REPORT INFORMATION
  Report Type: Report from Study
  Country: CA (occurrence: CA)
  Receive Date: 20250820
  Receipt Date: 20251106
  Transmission Date: 20260118
  Serious: Yes (Hospitalization)
  Sender: ABBVIE
  Company Number: CA-ABBVIE-6420213

PATIENT
  Age: 78 Year
  Sex: Female

DRUGS (49)
  1. VENETOCLAX [Suspect]
     Active Substance: VENETOCLAX
     Indication: Acute myeloid leukaemia
     Dosage: SITE SOC DOSING FOR CYCLE?1 IS DAY 1 100 MG DAY 2 200?MG DAY 3 ONWARDS IS 400?MG
     Route: 048
     Dates: start: 20241007, end: 20241007
  2. VENETOCLAX [Suspect]
     Active Substance: VENETOCLAX
     Indication: Acute myeloid leukaemia
     Dosage: DOSE INCREASE?SITE SOC CYCLE 1 DOSING IS DAY 1 100 MG DAY 2 200 MG, DAY 3 ONWARDS 400 MG
     Route: 048
     Dates: start: 20241008, end: 20241008
  3. VENETOCLAX [Suspect]
     Active Substance: VENETOCLAX
     Indication: Acute myeloid leukaemia
     Dosage: DOSE INCREASE: SITE PRACTICE IS?DO RAMP UP DOSING IN?CYCLE 1. DAY 1 - 100 MG,?DAY 2 - 200 MG, DAY...
     Route: 048
     Dates: start: 20241009, end: 20241031
  4. VENETOCLAX [Suspect]
     Active Substance: VENETOCLAX
     Indication: Acute myeloid leukaemia
     Dosage: DOSE REDUCTION?REASON FOR REDUCING THE DAILY DOSE OF VENETOCLAX: ADVERSE EVENT
     Route: 048
     Dates: start: 20241126, end: 20241202
  5. VENETOCLAX [Suspect]
     Active Substance: VENETOCLAX
     Indication: Acute myeloid leukaemia
     Dosage: ED OF CYCLE
     Route: 048
     Dates: start: 20250106, end: 20250112
  6. VENETOCLAX [Suspect]
     Active Substance: VENETOCLAX
     Indication: Acute myeloid leukaemia
     Dosage: END OF CYCLE
     Route: 048
     Dates: start: 20250203, end: 20250209
  7. VENETOCLAX [Suspect]
     Active Substance: VENETOCLAX
     Indication: Acute myeloid leukaemia
     Dosage: END OF CYCLE
     Route: 048
     Dates: start: 20250310, end: 20250316
  8. COVID-19 vaccine [Concomitant]
     Indication: Product used for unknown indication
     Dosage: VACCINE NO. 1
  9. COVID-19 vaccine [Concomitant]
     Indication: Product used for unknown indication
     Dosage: VACCINE NO. 2
  10. COVID-19 vaccine [Concomitant]
     Indication: Product used for unknown indication
     Dosage: VACCINE NO. 3
  11. AZACITIDINE [Suspect]
     Active Substance: AZACITIDINE
     Indication: Acute myeloid leukaemia
     Dosage: END OF CYCLE
     Route: 065
     Dates: start: 20241007, end: 20241011
  12. AZACITIDINE [Suspect]
     Active Substance: AZACITIDINE
     Indication: Acute myeloid leukaemia
     Dosage: END OF CYCLE
     Route: 065
     Dates: start: 20241126, end: 20241130
  13. AZACITIDINE [Suspect]
     Active Substance: AZACITIDINE
     Indication: Acute myeloid leukaemia
     Dosage: END OF CYCLE
     Route: 065
     Dates: start: 20250106, end: 20250109
  14. AZACITIDINE [Suspect]
     Active Substance: AZACITIDINE
     Indication: Acute myeloid leukaemia
     Dosage: END OF CYCLE
     Route: 065
     Dates: start: 20250203, end: 20250206
  15. AZACITIDINE [Suspect]
     Active Substance: AZACITIDINE
     Indication: Acute myeloid leukaemia
     Dosage: END OF CYCLE
     Route: 065
     Dates: start: 20250310, end: 20250314
  16. VITAMIN B COMPLEX [Concomitant]
     Active Substance: CYANOCOBALAMIN\DEXPANTHENOL\NIACINAMIDE\PYRIDOXINE HYDROCHLORIDE\RIBOFLAVIN 5^-PHOSPHATE SODIUM\THIA
     Indication: Routine health maintenance
     Route: 048
     Dates: end: 20241217
  17. ZINC [Concomitant]
     Active Substance: ZINC
     Indication: Routine health maintenance
     Route: 048
     Dates: end: 20241217
  18. CICLESONIDE [Concomitant]
     Active Substance: CICLESONIDE
     Indication: Product used for unknown indication
     Dosage: TIME INTERVAL: AS NECESSARY
     Route: 055
  19. PROBIOTICS NOS [Concomitant]
     Active Substance: PROBIOTICS NOS
     Indication: Routine health maintenance
     Dosage: TIME INTERVAL: AS NECESSARY
     Route: 048
  20. ESOMEPRAZOLE [Concomitant]
     Active Substance: ESOMEPRAZOLE
     Indication: Gastrointestinal disorder prophylaxis
     Dosage: TIME INTERVAL: AS NECESSARY
     Route: 048
     Dates: end: 20241217
  21. ALLOPURINOL [Concomitant]
     Active Substance: ALLOPURINOL
     Indication: Tumour lysis syndrome
     Route: 048
     Dates: start: 20241004, end: 20241013
  22. VALACYCLOVIR [Concomitant]
     Active Substance: VALACYCLOVIR HYDROCHLORIDE
     Indication: Antiviral prophylaxis
     Route: 048
     Dates: start: 20241007, end: 20250310
  23. DEXAMETHASONE [Concomitant]
     Active Substance: DEXAMETHASONE
     Indication: Prophylaxis of nausea and vomiting
     Route: 048
     Dates: start: 20241007, end: 20241007
  24. ONDANSETRON [Concomitant]
     Active Substance: ONDANSETRON
     Indication: Prophylaxis of nausea and vomiting
     Route: 048
     Dates: start: 20241007, end: 20241011
  25. DILAUDID [Concomitant]
     Active Substance: HYDROMORPHONE HYDROCHLORIDE
     Indication: Back pain
     Dosage: 1-2 MG, Q4H/PRN
     Route: 048
     Dates: start: 20241031, end: 20241107
  26. DILAUDID [Concomitant]
     Active Substance: HYDROMORPHONE HYDROCHLORIDE
     Indication: Back pain
     Dosage: Q1H/PRN, 0.25-0.5 MG
     Route: 042
     Dates: start: 20241104, end: 20241105
  27. Tazocin [Concomitant]
     Indication: Antibiotic prophylaxis
     Route: 042
     Dates: start: 20241031, end: 20241108
  28. TINZAPARIN [Concomitant]
     Active Substance: TINZAPARIN
     Indication: Prophylaxis
     Dosage: 8000 UNITS, OD/HOLD IF PLTS {30
     Route: 058
     Dates: start: 20241031, end: 20241111
  29. FUSIDIC ACID [Concomitant]
     Active Substance: FUSIDIC ACID
     Indication: Product used for unknown indication
     Route: 061
     Dates: start: 20241101, end: 20241105
  30. CALCIUM CHLORIDE\POTASSIUM CHLORIDE\SODIUM LACTATE [Concomitant]
     Active Substance: CALCIUM CHLORIDE\POTASSIUM CHLORIDE\SODIUM LACTATE
     Indication: Hypotension
     Route: 042
     Dates: start: 20241101, end: 20241101
  31. SENNA S [Concomitant]
     Active Substance: DOCUSATE SODIUM\SENNOSIDES
     Indication: Constipation
     Dosage: 2 TABLETS, BID/PRN
     Dates: start: 20241102, end: 20241217
  32. VITAMIN D [Concomitant]
     Active Substance: VITAMIN D NOS
     Indication: Routine health maintenance
     Dosage: 1 TABLET
     Route: 048
     Dates: start: 20241103, end: 20241217
  33. VITAMIN B12 [Concomitant]
     Active Substance: CYANOCOBALAMIN
     Indication: Bone marrow disorder
     Dosage: 1000 ?G
     Route: 058
     Dates: start: 20241102, end: 20241102
  34. FOLIC ACID [Concomitant]
     Active Substance: FOLIC ACID
     Indication: Bone marrow disorder
     Route: 048
     Dates: start: 20241102
  35. VANCOMYCIN [Concomitant]
     Active Substance: VANCOMYCIN
     Indication: Antibiotic prophylaxis
     Route: 042
     Dates: start: 20241104, end: 20241104
  36. VANCOMYCIN [Concomitant]
     Active Substance: VANCOMYCIN
     Indication: Antibiotic prophylaxis
     Route: 042
     Dates: start: 20241105, end: 20241108
  37. SODIUM PHOSPHATE [Concomitant]
     Active Substance: SODIUM PHOSPHATE
     Indication: Hypophosphataemia
     Route: 042
     Dates: start: 20241104, end: 20241104
  38. CANNABIDIOL [Concomitant]
     Active Substance: CANNABIDIOL
     Indication: Routine health maintenance
     Dosage: TIME INTERVAL: AS NECESSARY
     Route: 048
  39. FLAXSEED [Concomitant]
     Active Substance: FLAX SEED
     Indication: Routine health maintenance
     Route: 048
     Dates: end: 20241217
  40. CALCIUM ASCORBATE [Concomitant]
     Active Substance: CALCIUM ASCORBATE
     Indication: Routine health maintenance
     Route: 048
     Dates: end: 20250130
  41. ATORVASTATIN [Concomitant]
     Active Substance: ATORVASTATIN
     Indication: Hypercholesterolaemia
     Route: 048
     Dates: end: 20241217
  42. CALCIUM [Concomitant]
     Active Substance: CALCIUM
     Indication: Routine health maintenance
     Route: 048
     Dates: end: 20241217
  43. IRBESARTAN [Concomitant]
     Active Substance: IRBESARTAN
     Indication: Hypertension
     Route: 048
     Dates: end: 20241101
  44. IVERMECTIN [Concomitant]
     Active Substance: IVERMECTIN
     Indication: Rosacea
     Dosage: 1% CREAM
     Route: 061
     Dates: end: 20250130
  45. IVERMECTIN [Concomitant]
     Active Substance: IVERMECTIN
     Indication: Rosacea
     Dosage: TIME INTERVAL: AS NECESSARY
     Route: 048
  46. MAGNESIUM [Concomitant]
     Active Substance: MAGNESIUM
     Indication: Routine health maintenance
     Dosage: TIME INTERVAL: AS NECESSARY
     Route: 048
     Dates: end: 20241217
  47. SELENIUM [Concomitant]
     Active Substance: SELENIUM
     Indication: Routine health maintenance
     Route: 048
     Dates: end: 20241217
  48. DIETARY SUPPLEMENT\HERBALS\MILK THISTLE [Concomitant]
     Active Substance: MILK THISTLE
     Indication: Routine health maintenance
     Route: 048
     Dates: end: 20241217
  49. LASIX [Concomitant]
     Active Substance: FUROSEMIDE
     Indication: Oedema peripheral
     Route: 042
     Dates: start: 20241105, end: 20241210

REACTIONS (1)
  - Heparin-induced thrombocytopenia [Recovered/Resolved]

NARRATIVE: CASE EVENT DATE: 20241112
